FAERS Safety Report 4919673-X (Version None)
Quarter: 2006Q1

REPORT INFORMATION
  Report Type: 
  Country: None (occurrence: None)
  Receive Date: 20060113
  Receipt Date: 20051118
  Transmission Date: 20060701
  Serious: No
  Sender: FDA-Public Use
  Company Number: 2005SP004061

PATIENT
  Age: 67 Year
  Sex: Male
  Weight: 131.5431 kg

DRUGS (5)
  1. LUNESTA [Suspect]
     Dosage: 3 MG;ORAL
     Route: 048
     Dates: start: 20051114, end: 20051117
  2. MIROPEX [Concomitant]
  3. METFORMIN [Concomitant]
  4. ZOCOR [Concomitant]
  5. AMARYL [Concomitant]

REACTIONS (4)
  - DRUG INEFFECTIVE [None]
  - IRRITABILITY [None]
  - MIDDLE INSOMNIA [None]
  - NERVOUSNESS [None]
